FAERS Safety Report 5529638-5 (Version None)
Quarter: 2007Q4

REPORT INFORMATION
  Report Type: 
  Country: None (occurrence: None)
  Receive Date: 20071129
  Receipt Date: 20071115
  Transmission Date: 20080405
  Serious: Yes (Hospitalization, Other)
  Sender: FDA-Public Use
  Company Number: US-ABBOTT-07P-163-0422891-00

PATIENT
  Age: 34 Year
  Sex: Female

DRUGS (10)
  1. WARFARIN SODIUM [Suspect]
     Indication: PROPHYLAXIS
     Dosage: NOT REPORTED
  2. EPOPROSTENOL SODIUM [Suspect]
     Indication: PULMONARY HYPERTENSION
     Dosage: CONTINUOUS INFUSION
     Route: 042
  3. EPOPROSTENOL SODIUM [Suspect]
     Dosage: 40 NG/KG/HR
     Route: 042
  4. EPOPROSTENOL SODIUM [Suspect]
     Dosage: INCREASED BY 1 NG/KG/HR PER WEEK
     Route: 042
  5. DIGOXIN [Concomitant]
     Indication: DRUG USE FOR UNKNOWN INDICATION
     Dosage: NOT REPORTED
  6. LASIX [Concomitant]
     Indication: DRUG USE FOR UNKNOWN INDICATION
     Dosage: NOT REPORTED
  7. ALDACTONE [Concomitant]
     Indication: DRUG USE FOR UNKNOWN INDICATION
     Dosage: NOT REPORTED
  8. FERROUS SULFATE TAB [Concomitant]
     Indication: DRUG USE FOR UNKNOWN INDICATION
     Dosage: NOT REPORTED
  9. VANCOMYCIN [Concomitant]
     Indication: SEPSIS
     Dosage: NOT REPORTED
  10. GENTAMICIN [Concomitant]
     Indication: SEPSIS
     Dosage: NOT REPORTED

REACTIONS (1)
  - INTRA-UTERINE DEATH [None]
